FAERS Safety Report 5734302-3 (Version None)
Quarter: 2008Q2

REPORT INFORMATION
  Report Type: 
  Country: None (occurrence: None)
  Receive Date: 20080512
  Receipt Date: 20080507
  Transmission Date: 20081010
  Serious: Yes (Hospitalization)
  Sender: FDA-Public Use
  Company Number: DE-BRISTOL-MYERS SQUIBB COMPANY-14182901

PATIENT
  Age: 70 Year
  Sex: Male
  Weight: 80 kg

DRUGS (8)
  1. PACLITAXEL [Suspect]
     Indication: TRANSITIONAL CELL CARCINOMA
     Route: 042
     Dates: start: 20060117
  2. GEMCITABINE [Suspect]
     Indication: TRANSITIONAL CELL CARCINOMA
     Dosage: 1900 MG ON 17-JAN-2006.
     Route: 042
     Dates: start: 20060131
  3. BICARBONATE [Concomitant]
     Indication: PROPHYLAXIS
     Dosage: TABLETS
     Dates: start: 20050101
  4. VOLTAREN [Concomitant]
     Indication: PAIN
     Dosage: TABLETS
     Dates: start: 20051227, end: 20060118
  5. OMEPRAZOLE [Concomitant]
     Indication: PROPHYLAXIS
     Dosage: TABLETS
     Dates: start: 20051227, end: 20060124
  6. ALLOPURINOL [Concomitant]
     Dates: start: 20051227
  7. AUGMENTIN '125' [Concomitant]
     Indication: ANTIBIOTIC THERAPY
     Dosage: DF= 875/125 MG
     Dates: start: 20060124, end: 20060131
  8. NEXIUM [Concomitant]
     Indication: NAUSEA
     Dates: start: 20060126

REACTIONS (3)
  - ANAEMIA [None]
  - LEUKOPENIA [None]
  - THROMBOCYTOPENIA [None]
